FAERS Safety Report 6267161-3 (Version None)
Quarter: 2009Q3

REPORT INFORMATION
  Report Type: 
  Country: None (occurrence: None)
  Receive Date: 20090714
  Receipt Date: 20081217
  Transmission Date: 20100115
  Serious: No
  Sender: FDA-Public Use
  Company Number: US-ABBOTT-08P-163-0493584-00

PATIENT
  Sex: Female
  Weight: 81.72 kg

DRUGS (6)
  1. K-TAB [Suspect]
     Indication: ELECTROLYTE SUBSTITUTION THERAPY
     Route: 048
     Dates: start: 20070501
  2. LOVASTATIN [Concomitant]
     Indication: BLOOD CHOLESTEROL INCREASED
     Route: 048
  3. HYTRIN [Concomitant]
     Indication: HYPERTENSION
     Route: 048
  4. AMLODIPINE [Concomitant]
     Indication: HYPERTENSION
     Dosage: 1 TAB
     Route: 048
  5. PROZAC [Concomitant]
     Indication: DEPRESSION
     Route: 048
  6. LODINE [Concomitant]
     Indication: BACK PAIN

REACTIONS (2)
  - CYSTITIS [None]
  - MEDICATION RESIDUE [None]
